FAERS Safety Report 8273531-4 (Version None)
Quarter: 2012Q2

REPORT INFORMATION
  Report Type: 
  Country: None (occurrence: None)
  Receive Date: 20120411
  Receipt Date: 20120302
  Transmission Date: 20120825
  Serious: No
  Sender: FDA-Public Use
  Company Number: US-TEVA-2011006039

PATIENT
  Sex: Female

DRUGS (2)
  1. NUVIGIL [Suspect]
     Indication: SOMNOLENCE
     Route: 048
  2. NUVIGIL [Suspect]
     Route: 048

REACTIONS (9)
  - DRY MOUTH [None]
  - PERIPHERAL COLDNESS [None]
  - FEELING ABNORMAL [None]
  - HEADACHE [None]
  - INSOMNIA [None]
  - DECREASED APPETITE [None]
  - YAWNING [None]
  - SLEEP DISORDER [None]
  - FEELING JITTERY [None]
